FAERS Safety Report 20226877 (Version 4)
Quarter: 2023Q2

REPORT INFORMATION
  Report Type: Spontaneous
  Country: DE (occurrence: DE)
  Receive Date: 20211224
  Receipt Date: 20230530
  Transmission Date: 20230722
  Serious: Yes (Hospitalization)
  Sender: FDA-Public Use
  Company Number: None

PATIENT
  Age: 16 Year
  Sex: Female
  Weight: 112 kg

DRUGS (1)
  1. IBUPROFEN [Suspect]
     Active Substance: IBUPROFEN
     Indication: Dysmenorrhoea
     Dosage: 14 DOSAGE FORM, 12-14 TABLETS (I.E 46 MG/KG/D)
     Route: 065

REACTIONS (2)
  - Acute kidney injury [Recovered/Resolved]
  - Intentional overdose [Unknown]
